FAERS Safety Report 7534728-1 (Version None)
Quarter: 2011Q2

REPORT INFORMATION
  Report Type: 
  Country: None (occurrence: None)
  Receive Date: 20110609
  Receipt Date: 20110421
  Transmission Date: 20111010
  Serious: Yes (Death, Other)
  Sender: FDA-Public Use
  Company Number: PHHY2011JP09270

PATIENT
  Sex: Male

DRUGS (5)
  1. VERAPAMIL HCL [Concomitant]
     Dosage: 120 MG, UNK
     Route: 048
     Dates: start: 20080815
  2. CALBLOCK [Concomitant]
     Indication: HYPERTENSION
     Dosage: 16 MG, UNK
     Route: 048
     Dates: start: 20080829
  3. VALSARTAN [Suspect]
     Indication: HYPERTENSION
     Dosage: 80 MG, QD
     Route: 048
     Dates: start: 20090129, end: 20090909
  4. VALSARTAN [Suspect]
     Dosage: 160 MG, QD
     Route: 048
     Dates: start: 20090910
  5. BISOPROLOL FUMARATE [Concomitant]
     Indication: HYPERTENSION
     Dosage: 5 MG, UNK
     Route: 048
     Dates: start: 20080815

REACTIONS (2)
  - DYSPNOEA [None]
  - CARDIO-RESPIRATORY ARREST [None]
